FAERS Safety Report 11100035 (Version 1)
Quarter: 2015Q2

REPORT INFORMATION
  Report Type: Spontaneous
  Country: US (occurrence: None)
  Receive Date: 20150507
  Receipt Date: 20150507
  Transmission Date: 20150821
  Serious: Yes (Hospitalization)
  Sender: FDA-Public Use
  Company Number: None

PATIENT
  Age: 35 Year
  Sex: Female

DRUGS (5)
  1. PANTOPRAZOLE [Concomitant]
     Active Substance: PANTOPRAZOLE SODIUM
  2. LORAZEPAM. [Concomitant]
     Active Substance: LORAZEPAM
  3. ESOMEPRAZOLE [Concomitant]
     Active Substance: ESOMEPRAZOLE
  4. CLONAZEPAM. [Suspect]
     Active Substance: CLONAZEPAM
     Dates: start: 20130725, end: 20131203
  5. ETHINYLESTRADIOL W/NORGESTIMATE [Concomitant]

REACTIONS (5)
  - Aspartate aminotransferase increased [None]
  - Blood albumin increased [None]
  - Alanine aminotransferase increased [None]
  - Drug-induced liver injury [None]
  - Blood alkaline phosphatase increased [None]

NARRATIVE: CASE EVENT DATE: 20131122
